FAERS Safety Report 7536968-4 (Version None)
Quarter: 2011Q2

REPORT INFORMATION
  Report Type: 
  Country: None (occurrence: None)
  Receive Date: 20110608
  Receipt Date: 20110608
  Transmission Date: 20111010
  Serious: Yes (Hospitalization)
  Sender: FDA-Public Use
  Company Number: None

PATIENT
  Age: 83 Year
  Sex: Male
  Weight: 98 kg

DRUGS (2)
  1. GLYBURIDE [Suspect]
     Dosage: 2.5MG BID PO
     Route: 048
     Dates: start: 20101221, end: 20110427
  2. SULFAMETHOXAZOLE AND TRIMETHOPRIM [Suspect]
     Dosage: 800MG/160MG BID PO
     Route: 048
     Dates: start: 20110420, end: 20110427

REACTIONS (10)
  - BLOOD CREATININE INCREASED [None]
  - MUSCLE SPASMS [None]
  - UNRESPONSIVE TO STIMULI [None]
  - DEPRESSED LEVEL OF CONSCIOUSNESS [None]
  - HICCUPS [None]
  - URINARY TRACT INFECTION [None]
  - COLD SWEAT [None]
  - BLOOD UREA INCREASED [None]
  - HYPOGLYCAEMIA [None]
  - INCORRECT DOSE ADMINISTERED [None]
